FAERS Safety Report 23730878 (Version 1)
Quarter: 2024Q2

REPORT INFORMATION
  Report Type: Spontaneous
  Country: CO (occurrence: CO)
  Receive Date: 20240411
  Receipt Date: 20240411
  Transmission Date: 20240716
  Serious: Yes (Death, Other)
  Sender: FDA-Public Use
  Company Number: CO-ASTELLAS-2024US010705

PATIENT
  Sex: Male

DRUGS (1)
  1. XOSPATA [Suspect]
     Active Substance: GILTERITINIB
     Indication: Product used for unknown indication
     Dosage: UNK, UNKNOWN FREQ. (APPROXIMATELY 1 MONTH)
     Route: 048
     Dates: start: 2024

REACTIONS (2)
  - Sepsis [Fatal]
  - Shock [Fatal]
